FAERS Safety Report 5370762-8 (Version None)
Quarter: 2007Q2

REPORT INFORMATION
  Report Type: 
  Country: None (occurrence: None)
  Receive Date: 20070626
  Receipt Date: 20070620
  Transmission Date: 20071010
  Serious: Yes (Disabling)
  Sender: FDA-Public Use
  Company Number: A0646994A

PATIENT
  Age: 47 Year
  Sex: Male

DRUGS (8)
  1. LAMICTAL [Suspect]
     Indication: BIPOLAR DISORDER
     Route: 048
  2. LISINOPRIL [Concomitant]
  3. DIURETIC [Concomitant]
  4. HYDROCHLOROTHIAZIDE [Concomitant]
  5. VALIUM [Concomitant]
  6. ASPIRIN [Concomitant]
  7. XANAX [Concomitant]
  8. ABILIFY [Concomitant]

REACTIONS (6)
  - ARTHRALGIA [None]
  - CONFUSIONAL STATE [None]
  - DYSLEXIA [None]
  - IMPAIRED WORK ABILITY [None]
  - JOINT LOCK [None]
  - RASH [None]
